FAERS Safety Report 6327277-X (Version None)
Quarter: 2009Q3

REPORT INFORMATION
  Report Type: 
  Country: None (occurrence: None)
  Receive Date: 20090825
  Receipt Date: 20090812
  Transmission Date: 20100115
  Serious: Yes (Other)
  Sender: FDA-Public Use
  Company Number: DE-GENENTECH-289006

PATIENT
  Age: 64 Year
  Sex: Female

DRUGS (5)
  1. TRASTUZUMAB [Suspect]
     Indication: BREAST CANCER
     Dosage: 622.45 MG, UNK
     Route: 042
     Dates: start: 20071218
  2. VERAPAMIL [Concomitant]
     Indication: DRUG USE FOR UNKNOWN INDICATION
     Dosage: UNK
  3. LISINOPRIL [Concomitant]
     Indication: DRUG USE FOR UNKNOWN INDICATION
     Dosage: UNK
  4. XIPAMID [Concomitant]
     Indication: DRUG USE FOR UNKNOWN INDICATION
     Dosage: UNK
  5. SPIRONOLACTONE [Concomitant]
     Indication: DRUG USE FOR UNKNOWN INDICATION
     Dosage: UNK

REACTIONS (2)
  - CARDIAC FAILURE [None]
  - PULMONARY CONGESTION [None]
